FAERS Safety Report 25171561 (Version 3)
Quarter: 2025Q3

REPORT INFORMATION
  Report Type: Spontaneous
  Country: GB (occurrence: GB)
  Receive Date: 20250408
  Receipt Date: 20250809
  Transmission Date: 20251021
  Serious: Yes (Death, Other)
  Sender: ALEXION PHARMACEUTICALS
  Company Number: None

PATIENT
  Age: 79 Year
  Sex: Male

DRUGS (12)
  1. DAPAGLIFLOZIN [Suspect]
     Active Substance: DAPAGLIFLOZIN
     Indication: Cardiac failure
     Dosage: 10 MILLIGRAM, QD
     Route: 065
     Dates: start: 20241001, end: 20250219
  2. PREGABALIN [Concomitant]
     Active Substance: PREGABALIN
     Dosage: 50 MILLIGRAM, QD
     Route: 065
  3. ATORVASTATIN [Concomitant]
     Active Substance: ATORVASTATIN
     Dosage: 80 MILLIGRAM, QD
     Route: 065
  4. AMITRIPTYLINE [Concomitant]
     Active Substance: AMITRIPTYLINE
     Dosage: 25 MILLIGRAM, QD
     Route: 065
  5. EDOXABAN [Concomitant]
     Active Substance: EDOXABAN
     Dosage: 60 MILLIGRAM, QD
     Route: 065
  6. SPIRONOLACTONE [Concomitant]
     Active Substance: SPIRONOLACTONE
     Dosage: 25 MILLIGRAM, QD
     Route: 065
  7. LANSOPRAZOLE [Concomitant]
     Active Substance: LANSOPRAZOLE
     Dosage: 30 MILLIGRAM, QD
     Route: 065
  8. CLOPIDOGREL [Concomitant]
     Active Substance: CLOPIDOGREL BISULFATE
     Dosage: 75 MILLIGRAM, QD
     Route: 065
  9. PERINDOPRIL [Concomitant]
     Active Substance: PERINDOPRIL
     Dosage: 4 MILLIGRAM, QD
     Route: 065
  10. BISOPROLOL [Concomitant]
     Active Substance: BISOPROLOL
     Route: 065
  11. TAMSULOSIN [Concomitant]
     Active Substance: TAMSULOSIN
     Dosage: 400 MICROGRAM, QD
     Route: 065
  12. DIGOXIN [Concomitant]
     Active Substance: DIGOXIN
     Dosage: 187.5 MICROGRAM, QD
     Route: 065

REACTIONS (13)
  - Emphysematous cystitis [Fatal]
  - Prostatitis [Unknown]
  - Pelvic congestion [Unknown]
  - Iron deficiency anaemia [Unknown]
  - Metabolic acidosis [Unknown]
  - Blood lactic acid increased [Unknown]
  - Inflammatory marker increased [Unknown]
  - Sepsis [Unknown]
  - Urethral haemorrhage [Unknown]
  - Contraindicated device used [Unknown]
  - Acute kidney injury [Unknown]
  - Haemodynamic instability [Unknown]
  - Abdominal pain [Unknown]

NARRATIVE: CASE EVENT DATE: 20241001
